FAERS Safety Report 11346947 (Version 1)
Quarter: 2015Q3

REPORT INFORMATION
  Report Type: Spontaneous
  Country: US (occurrence: US)
  Receive Date: 20150803
  Receipt Date: 20150803
  Transmission Date: 20151125
  Serious: No
  Sender: FDA-Public Use
  Company Number: US-ELI_LILLY_AND_COMPANY-US201102004368

PATIENT
  Sex: Male

DRUGS (3)
  1. TRILEPTAL [Concomitant]
     Active Substance: OXCARBAZEPINE
  2. STRATTERA [Suspect]
     Active Substance: ATOMOXETINE HYDROCHLORIDE
     Indication: ATTENTION DEFICIT/HYPERACTIVITY DISORDER
     Dosage: UNK, UNKNOWN
  3. STRATTERA [Suspect]
     Active Substance: ATOMOXETINE HYDROCHLORIDE
     Dosage: UNK, UNKNOWN

REACTIONS (6)
  - Irritability [Unknown]
  - Increased appetite [Unknown]
  - Decreased appetite [Recovered/Resolved]
  - Hypersomnia [Unknown]
  - Mood swings [Unknown]
  - Aggression [Unknown]
